FAERS Safety Report 18545484 (Version 1)
Quarter: 2020Q4

REPORT INFORMATION
  Report Type: Spontaneous
  Country: US (occurrence: US)
  Receive Date: 20201125
  Receipt Date: 20201125
  Transmission Date: 20210114
  Serious: Yes (Hospitalization)
  Sender: FDA-Public Use
  Company Number: None

PATIENT
  Age: 73 Year
  Sex: Female
  Weight: 79.2 kg

DRUGS (3)
  1. CYCLOPHOSPHAMI [Suspect]
     Active Substance: CYCLOPHOSPHAMIDE
     Dates: end: 20161117
  2. TAXOL [Suspect]
     Active Substance: PACLITAXEL
     Dates: end: 20170303
  3. DOXORUBICIN HYDROCHLORIDE. [Suspect]
     Active Substance: DOXORUBICIN HYDROCHLORIDE
     Dates: end: 20161117

REACTIONS (12)
  - Respiratory rate increased [None]
  - Dyspnoea [None]
  - Cough [None]
  - Rales [None]
  - Pneumonia [None]
  - Lymphadenopathy mediastinal [None]
  - Pulmonary mass [None]
  - Joint swelling [None]
  - Bundle branch block left [None]
  - Fluid retention [None]
  - Cardiac failure congestive [None]
  - Pleural effusion [None]

NARRATIVE: CASE EVENT DATE: 20190707
